APPROVED DRUG PRODUCT: FLUONID
Active Ingredient: FLUOCINOLONE ACETONIDE
Strength: 0.01%
Dosage Form/Route: SOLUTION;TOPICAL
Application: A087158 | Product #001
Applicant: ALLERGAN HERBERT DIV ALLERGAN INC
Approved: Mar 17, 1983 | RLD: No | RS: No | Type: DISCN